FAERS Safety Report 4448334-9 (Version None)
Quarter: 2004Q3

REPORT INFORMATION
  Report Type: 
  Country: None (occurrence: None)
  Receive Date: 20040909
  Receipt Date: 20040824
  Transmission Date: 20050211
  Serious: Yes (Other)
  Sender: FDA-Public Use
  Company Number: 2004230383BR

PATIENT
  Age: 22 Year
  Sex: Female

DRUGS (2)
  1. DEPO-PROVERA [Suspect]
     Indication: CONTRACEPTION
     Dosage: 150 MG, FIRST INJECTION, IM; 150 MG, SECOND INJECTION, IM;  150 MG, LAST INJECTION, IM
     Route: 030
     Dates: start: 20030801, end: 20030801
  2. DEPO-PROVERA [Suspect]
     Indication: CONTRACEPTION
     Dosage: 150 MG, FIRST INJECTION, IM; 150 MG, SECOND INJECTION, IM;  150 MG, LAST INJECTION, IM
     Route: 030
     Dates: start: 20031106, end: 20031106

REACTIONS (5)
  - ABORTION SPONTANEOUS [None]
  - BREAST OEDEMA [None]
  - DRUG INEFFECTIVE [None]
  - GALACTORRHOEA [None]
  - METRORRHAGIA [None]
